FAERS Safety Report 7230402-X (Version None)
Quarter: 2011Q1

REPORT INFORMATION
  Report Type: 
  Country: None (occurrence: None)
  Receive Date: 20110118
  Receipt Date: 20110106
  Transmission Date: 20110831
  Serious: Yes (Death)
  Sender: FDA-Public Use
  Company Number: US-CELGENEUS-163-21880-10121868

PATIENT
  Sex: Female

DRUGS (14)
  1. AMLODIPINE [Concomitant]
     Route: 065
  2. CALCIUM [Concomitant]
     Route: 065
  3. DULCOLAX [Concomitant]
     Route: 065
  4. HYDROCHLOROTHIAZIDE [Concomitant]
     Route: 065
  5. NEXIUM [Concomitant]
     Route: 065
  6. DEXAMETHASONE [Suspect]
     Indication: MULTIPLE MYELOMA
     Route: 065
  7. AREDIA [Suspect]
     Indication: MULTIPLE MYELOMA
     Route: 065
  8. TRANSFUSION [Concomitant]
     Route: 051
     Dates: start: 20100601, end: 20100601
  9. ARMOR THYROID [Concomitant]
     Route: 065
  10. PROCRIT [Concomitant]
     Route: 065
  11. METOPROLOL [Concomitant]
     Route: 065
  12. ADVIL [Concomitant]
     Indication: PAIN
     Route: 065
  13. REVLIMID [Suspect]
     Indication: MULTIPLE MYELOMA
     Route: 048
     Dates: start: 20100501, end: 20101201
  14. ASA [Concomitant]
     Route: 065

REACTIONS (5)
  - PNEUMONIA [None]
  - FALL [None]
  - DEHYDRATION [None]
  - URINARY TRACT INFECTION [None]
  - RENAL FAILURE [None]
